FAERS Safety Report 6553450-1 (Version None)
Quarter: 2010Q1

REPORT INFORMATION
  Report Type: 
  Country: None (occurrence: None)
  Receive Date: 20100127
  Receipt Date: 20100119
  Transmission Date: 20100710
  Serious: Yes (Other)
  Sender: FDA-Public Use
  Company Number: US-ASTRAZENECA-2005UW18429

PATIENT
  Age: 72 Year
  Sex: Female
  Weight: 62.1 kg

DRUGS (4)
  1. IRESSA [Suspect]
     Indication: NON-SMALL CELL LUNG CANCER STAGE III
     Route: 048
     Dates: start: 20030101, end: 20040101
  2. IRESSA [Suspect]
     Route: 048
     Dates: start: 20040101
  3. VITAMINS [Concomitant]
  4. Z-PAK [Concomitant]

REACTIONS (7)
  - ACNE [None]
  - COUGH [None]
  - DYSPHONIA [None]
  - EYE PAIN [None]
  - NODULE [None]
  - RASH [None]
  - RENAL DISORDER [None]
